FAERS Safety Report 20381677 (Version 1)
Quarter: 2022Q1

REPORT INFORMATION
  Report Type: Spontaneous
  Country: CN (occurrence: CN)
  Receive Date: 20220127
  Receipt Date: 20220127
  Transmission Date: 20220423
  Serious: Yes (Other)
  Sender: FDA-Public Use
  Company Number: CN-009507513-2201CHN006912

PATIENT
  Age: 67 Year
  Sex: Male
  Weight: 69 kg

DRUGS (6)
  1. KEYTRUDA [Suspect]
     Active Substance: PEMBROLIZUMAB
     Indication: Lung neoplasm malignant
     Dosage: 200 MG, ONCE
     Route: 041
     Dates: start: 20220101, end: 20220101
  2. PACLITAXEL [Suspect]
     Active Substance: PACLITAXEL
     Indication: Lung neoplasm malignant
     Dosage: 200 MG, ONCE
     Route: 041
     Dates: start: 20220101, end: 20220101
  3. CARBOPLATIN [Suspect]
     Active Substance: CARBOPLATIN
     Indication: Lung neoplasm malignant
     Dosage: 550 MG, ONCE
     Route: 041
     Dates: start: 20220101, end: 20220101
  4. CHLORIDE SODIUM [Concomitant]
     Indication: Medication dilution
     Dosage: 96 ML, ONCE
     Route: 041
     Dates: start: 20220101, end: 20220101
  5. CHLORIDE SODIUM [Concomitant]
     Dosage: 100 ML, ONCE
     Route: 041
     Dates: start: 20220101, end: 20220101
  6. DEXTROSE [Concomitant]
     Active Substance: DEXTROSE
     Indication: Medication dilution
     Dosage: 500 ML, ONCE, STRENGTH: 5%
     Route: 041
     Dates: start: 20220101, end: 20220101

REACTIONS (3)
  - Neutrophil count decreased [Recovered/Resolved]
  - Myelosuppression [Unknown]
  - White blood cell count decreased [Recovered/Resolved]

NARRATIVE: CASE EVENT DATE: 20220101
